FAERS Safety Report 22256350 (Version 1)
Quarter: 2023Q2

REPORT INFORMATION
  Report Type: Spontaneous
  Country: US (occurrence: None)
  Receive Date: 20230425
  Receipt Date: 20230425
  Transmission Date: 20230721
  Serious: Yes (Other)
  Sender: FDA-Public Use
  Company Number: None

PATIENT
  Sex: Female

DRUGS (19)
  1. DIMETHYL FUMARATE [Suspect]
     Active Substance: DIMETHYL FUMARATE
     Indication: Multiple sclerosis
     Dosage: 240 MG ORAL??TAKE 1 CAPSULE BY MOUTH 2 TIMES DAILY FOR RELAPSING FORM OF MULTIPLE SCLEROSIS.  SWALLO
     Route: 048
     Dates: start: 20211221
  2. PEPTO BISMOL TAB [Concomitant]
  3. TECFIDERA [Concomitant]
     Active Substance: DIMETHYL FUMARATE
  4. DOXYCYCL HUC CAP [Concomitant]
  5. ALBUTEROL AER HFA [Concomitant]
  6. GABAPENTIN [Concomitant]
  7. ESTRADIOL [Concomitant]
     Active Substance: ESTRADIOL
  8. SPIRIVA SPR [Concomitant]
  9. PANTOPRAZOLE TAB [Concomitant]
  10. BUPROPION HYDROCHLORIDE [Concomitant]
     Active Substance: BUPROPION HYDROCHLORIDE
  11. SERTRALINE HYDROCHLORIDE [Concomitant]
     Active Substance: SERTRALINE HYDROCHLORIDE
  12. FLUTICASONE SPR [Concomitant]
  13. BUPROPION HYDROCHLORIDE [Concomitant]
     Active Substance: BUPROPION HYDROCHLORIDE
  14. DONEPEZIL [Concomitant]
  15. LORAZEPAM TAB [Concomitant]
  16. HYDROXYZINE HYDROCHLORIDE [Concomitant]
     Active Substance: HYDROXYZINE HYDROCHLORIDE
  17. OXYBUTYNIN TAB [Concomitant]
  18. DOXYCYCL HYC CAP [Concomitant]
  19. CYCLOBENZAPR TAB [Concomitant]

REACTIONS (2)
  - Surgery [None]
  - Therapy interrupted [None]
